FAERS Safety Report 5061111-3 (Version None)
Quarter: 2006Q3

REPORT INFORMATION
  Report Type: 
  Country: None (occurrence: None)
  Receive Date: 20060725
  Receipt Date: 20060330
  Transmission Date: 20061208
  Serious: Yes (Life-Threatening, Hospitalization)
  Sender: FDA-Public Use
  Company Number: GR-SANOFI-SYNTHELABO-D01200601465

PATIENT
  Sex: Male
  Weight: 79 kg

DRUGS (3)
  1. IRBESARTAN/ PLACEBO [Suspect]
     Indication: ATRIAL FIBRILLATION
     Dosage: 150 MG/DAY FOR 2 WEEKS FOLLOWING BY 300 MG/DAY
     Route: 048
     Dates: start: 20041123
  2. ASPIRIN [Concomitant]
     Indication: ATRIAL FIBRILLATION
     Dosage: 100 MG
     Route: 048
     Dates: start: 20041123
  3. CLOPIDOGREL [Suspect]
     Indication: ATRIAL FIBRILLATION
     Route: 048
     Dates: start: 20041123, end: 20050925

REACTIONS (2)
  - HAEMOGLOBIN DECREASED [None]
  - HAEMORRHAGIC TRANSFORMATION STROKE [None]
